FAERS Safety Report 21421269 (Version 2)
Quarter: 2022Q4

REPORT INFORMATION
  Report Type: Report from Study
  Country: CA (occurrence: CA)
  Receive Date: 20221007
  Receipt Date: 20221216
  Transmission Date: 20230113
  Serious: Yes (Hospitalization)
  Sender: FDA-Public Use
  Company Number: CA-NOVARTISPH-NVSC2022CA191197

PATIENT
  Age: 53 Year
  Sex: Female

DRUGS (1)
  1. HYRIMOZ [Suspect]
     Active Substance: ADALIMUMAB-ADAZ
     Indication: Crohn^s disease
     Dosage: 40 MG
     Route: 058
     Dates: start: 20220821

REACTIONS (3)
  - Abscess intestinal [Unknown]
  - Abscess rupture [Unknown]
  - Injection site pain [Unknown]

NARRATIVE: CASE EVENT DATE: 20220821
